FAERS Safety Report 4400830-6 (Version None)
Quarter: 2004Q3

REPORT INFORMATION
  Report Type: 
  Country: None (occurrence: None)
  Receive Date: 20040907
  Receipt Date: 20030626
  Transmission Date: 20050211
  Serious: Yes (Hospitalization)
  Sender: FDA-Public Use
  Company Number: US-BRISTOL-MYERS SQUIBB COMPANY-12311825

PATIENT
  Age: 76 Year
  Sex: Male

DRUGS (8)
  1. COUMADIN [Suspect]
     Indication: DEEP VEIN THROMBOSIS
     Route: 048
     Dates: start: 20030623
  2. LISINOPRIL [Concomitant]
     Dates: start: 20030601
  3. NAPROXEN [Concomitant]
     Dosage: IN A.M.
     Dates: start: 20030601
  4. GABAPENTIN [Concomitant]
     Dosage: AT NIGHT.
     Dates: start: 20030601
  5. CHOLESTYRAMINE [Concomitant]
     Dates: start: 20030601
  6. CIPRO [Concomitant]
     Dates: start: 20030601
  7. ASPIRIN [Concomitant]
     Dates: start: 20030601
  8. GLUCOVANCE [Concomitant]
     Dosage: TABLETS: 5MG/500 MG.
     Dates: start: 20030601

REACTIONS (1)
  - INTERNATIONAL NORMALISED RATIO ABNORMAL [None]
